FAERS Safety Report 7314823-2 (Version None)
Quarter: 2011Q1

REPORT INFORMATION
  Report Type: 
  Country: None (occurrence: None)
  Receive Date: 20110225
  Receipt Date: 20110112
  Transmission Date: 20110831
  Serious: No
  Sender: FDA-Public Use
  Company Number: US-MYLANLABS-2010S1023653

PATIENT
  Age: 15 Year
  Sex: Male
  Weight: 66.68 kg

DRUGS (4)
  1. AMNESTEEM [Suspect]
     Route: 048
     Dates: end: 20101215
  2. AMNESTEEM [Suspect]
     Route: 048
     Dates: end: 20101215
  3. AMNESTEEM [Suspect]
     Indication: ACNE
     Route: 048
     Dates: start: 20101130
  4. AMNESTEEM [Suspect]
     Route: 048

REACTIONS (1)
  - IRRITABILITY [None]
